FAERS Safety Report 21602672 (Version 2)
Quarter: 2022Q4

REPORT INFORMATION
  Report Type: Spontaneous
  Country: GB (occurrence: GB)
  Receive Date: 20221116
  Receipt Date: 20221128
  Transmission Date: 20230112
  Serious: Yes (Hospitalization, Other)
  Sender: FDA-Public Use
  Company Number: GB-MYLANLABS-2022M1125675

PATIENT
  Age: 28 Year
  Sex: Male
  Weight: 140 kg

DRUGS (15)
  1. CLOZARIL [Suspect]
     Active Substance: CLOZAPINE
     Indication: Schizophrenia
     Dosage: 100 MILLIGRAM, OD 12H00
     Route: 048
     Dates: start: 20180326
  2. CLOZARIL [Suspect]
     Active Substance: CLOZAPINE
     Indication: Autism spectrum disorder
     Dosage: 175 MILLIGRAM, OD 22H00
     Route: 065
     Dates: start: 20180326
  3. CLOZARIL [Suspect]
     Active Substance: CLOZAPINE
     Indication: Attention deficit hyperactivity disorder
  4. CLOZARIL [Suspect]
     Active Substance: CLOZAPINE
     Indication: Borderline personality disorder
  5. CLOZARIL [Suspect]
     Active Substance: CLOZAPINE
     Indication: Intentional self-injury
  6. LANSOPRAZOLE [Concomitant]
     Active Substance: LANSOPRAZOLE
     Indication: Gastrooesophageal reflux disease
     Dosage: 30 MILLIGRAM, OD
     Route: 048
  7. LISDEXAMFETAMINE [Concomitant]
     Active Substance: LISDEXAMFETAMINE
     Indication: Attention deficit hyperactivity disorder
     Dosage: 50 MILLIGRAM, OD NOON
     Route: 048
  8. FOLIC ACID [Concomitant]
     Active Substance: FOLIC ACID
     Indication: Nutritional supplementation
     Dosage: 5 MILLIGRAM, OD
     Route: 048
  9. BECLOMETHASONE [Concomitant]
     Active Substance: BECLOMETHASONE
     Indication: Asthma
     Dosage: 100 MICROGRAM, BD
  10. VENTOLIN [Concomitant]
     Active Substance: ALBUTEROL SULFATE
     Indication: Asthma
     Dosage: UNK UNK, PRN, WITHIN BNF LIMITS
     Route: 065
  11. ALBUTEROL [Concomitant]
     Active Substance: ALBUTEROL
     Indication: Asthma
     Dosage: UNK UNK, PRN, WITHIN BNF LIMITS
     Route: 065
  12. COCODAMOL [Concomitant]
     Active Substance: ACETAMINOPHEN\CODEINE PHOSPHATE
     Indication: Pain
     Dosage: UNK UNK, PRN, WITHIN BNF LIMITS
     Route: 065
  13. LORAZEPAM [Concomitant]
     Active Substance: LORAZEPAM
     Indication: Anxiety
     Dosage: UNK, PRN, WITHIN BNF LIMITS
     Route: 065
  14. LORAZEPAM [Concomitant]
     Active Substance: LORAZEPAM
     Indication: Agitation
  15. DIVALPROEX SODIUM [Concomitant]
     Active Substance: DIVALPROEX SODIUM
     Dosage: UNK
     Route: 065

REACTIONS (9)
  - Hospitalisation [Recovered/Resolved]
  - Electrocardiogram QT prolonged [Unknown]
  - Salivary hypersecretion [Unknown]
  - Heart rate increased [Unknown]
  - Blood cholesterol increased [Unknown]
  - Asthma [Unknown]
  - Overweight [Unknown]
  - Oxygen saturation decreased [Unknown]
  - Off label use [Unknown]

NARRATIVE: CASE EVENT DATE: 20220823
